FAERS Safety Report 18754404 (Version 1)
Quarter: 2021Q1

REPORT INFORMATION
  Report Type: Spontaneous
  Country: CA (occurrence: CA)
  Receive Date: 20210119
  Receipt Date: 20210119
  Transmission Date: 20210419
  Serious: Yes (Hospitalization)
  Sender: FDA-Public Use
  Company Number: CA-JNJFOC-20210120205

PATIENT
  Age: 59 Year
  Sex: Female
  Weight: 82 kg

DRUGS (4)
  1. INVEGA SUSTENNA [Suspect]
     Active Substance: PALIPERIDONE PALMITATE
  2. INVEGA SUSTENNA [Suspect]
     Active Substance: PALIPERIDONE PALMITATE
     Indication: SCHIZOPHRENIA
     Route: 030
  3. BENZTROPINE [BENZATROPINE] [Concomitant]
     Active Substance: BENZTROPINE
  4. INVEGA SUSTENNA [Suspect]
     Active Substance: PALIPERIDONE PALMITATE

REACTIONS (7)
  - Loss of personal independence in daily activities [Recovered/Resolved]
  - Hyperhidrosis [Recovered/Resolved]
  - Feeding disorder [Recovered/Resolved]
  - Tremor [Recovered/Resolved]
  - Neuroleptic malignant syndrome [Recovered/Resolved]
  - Malignant catatonia [Recovered/Resolved]
  - Cough [Recovered/Resolved]
